FAERS Safety Report 6518291-X (Version None)
Quarter: 2009Q4

REPORT INFORMATION
  Report Type: 
  Country: None (occurrence: None)
  Receive Date: 20091224
  Receipt Date: 20091214
  Transmission Date: 20100525
  Serious: Yes (Life-Threatening, Hospitalization)
  Sender: FDA-Public Use
  Company Number: DE-GENENTECH-295761

PATIENT
  Sex: Male
  Weight: 63 kg

DRUGS (2)
  1. MABTHERA [Suspect]
     Indication: RHEUMATOID ARTHRITIS
     Dosage: 1000 MG, SINGLE
     Route: 042
     Dates: start: 20091125, end: 20091125
  2. PREDNISOLONE [Concomitant]
     Indication: RHEUMATOID ARTHRITIS
     Dosage: 8 MG, PRN
     Route: 048
     Dates: start: 20000101

REACTIONS (1)
  - ACUTE MYOCARDIAL INFARCTION [None]
